FAERS Safety Report 9555735 (Version 1)
Quarter: 2013Q3

REPORT INFORMATION
  Report Type: Spontaneous
  Country: NL (occurrence: NL)
  Receive Date: 20130926
  Receipt Date: 20130926
  Transmission Date: 20140515
  Serious: Yes (Hospitalization)
  Sender: FDA-Public Use
  Company Number: PHHY2013NL106929

PATIENT
  Sex: Male
  Weight: 70 kg

DRUGS (8)
  1. RIVASTIGMINE [Suspect]
     Indication: HALLUCINATION
     Dosage: 9.5 MG, PER 24 HR
     Route: 062
     Dates: start: 201308, end: 20130919
  2. CLOZAPINE [Suspect]
     Indication: HALLUCINATION
     Dosage: 0.5 DF (OF 25 MG) TABLET, QD
     Dates: start: 201308
  3. MADOPAR [Concomitant]
     Dosage: 2 DF, TID
  4. MOVICOLON [Concomitant]
     Dosage: 1 DF, BID (POWDER FOR DRINK IN SACHET)
  5. PANTAZOLE [Concomitant]
     Dosage: 1 DF, QD
  6. OXAZEPAM [Concomitant]
     Dosage: WHEN NEEDED 1-2 DF DAILY
  7. MADOPAR HBS [Concomitant]
     Dosage: 1 DF, QD
  8. PARACITAMOL [Concomitant]
     Dosage: WHEN NEEDED

REACTIONS (1)
  - Liver function test abnormal [Recovering/Resolving]
